FAERS Safety Report 10749690 (Version 1)
Quarter: 2015Q1

REPORT INFORMATION
  Report Type: Spontaneous
  Country: US (occurrence: US)
  Receive Date: 20150129
  Receipt Date: 20150129
  Transmission Date: 20150721
  Serious: Yes (Hospitalization)
  Sender: FDA-Public Use
  Company Number: US-PFIZER INC-2015031806

PATIENT
  Age: 62 Year
  Sex: Female
  Weight: 58 kg

DRUGS (8)
  1. NATURE MADE E VITAMIN [Concomitant]
     Dosage: 200 MG, UNK
  2. NATURE MADE D [Concomitant]
     Dosage: 1000 MG, UNK
  3. LYRICA [Suspect]
     Active Substance: PREGABALIN
     Indication: NEUROPATHY PERIPHERAL
     Dosage: UNK
     Route: 048
     Dates: start: 201407
  4. NATURE MADE C [Concomitant]
     Dosage: 500 MG, 1X/DAY
     Route: 048
  5. SYNTHROID [Concomitant]
     Active Substance: LEVOTHYROXINE SODIUM
     Indication: THYROID DISORDER
     Dosage: 74 ?G, 1X/DAY
     Route: 048
  6. BENAZEPRIL [Concomitant]
     Active Substance: BENAZEPRIL\BENAZEPRIL HYDROCHLORIDE
     Indication: BLOOD PRESSURE
     Dosage: 5 MG, 1X/DAY
     Route: 048
  7. ARTHROTEC [Suspect]
     Active Substance: DICLOFENAC SODIUM\MISOPROSTOL
     Indication: ARTHRITIS
     Dosage: 75MG-200MCG, 2X/DAY
     Route: 048
  8. GERITOL [Concomitant]
     Active Substance: MINERALS\VITAMINS
     Dosage: 1 DF, 1X/DAY
     Route: 048

REACTIONS (5)
  - Vomiting [Recovering/Resolving]
  - Memory impairment [Not Recovered/Not Resolved]
  - Dehydration [Recovering/Resolving]
  - Blood pressure increased [Recovering/Resolving]
  - Intracranial aneurysm [Unknown]

NARRATIVE: CASE EVENT DATE: 20140902
